FAERS Safety Report 9263149 (Version 2)
Quarter: 2013Q2

REPORT INFORMATION
  Report Type: Spontaneous
  Country: US (occurrence: US)
  Receive Date: 20130430
  Receipt Date: 20130506
  Transmission Date: 20140414
  Serious: Yes (Other)
  Sender: FDA-Public Use
  Company Number: US-TEVA-400660USA

PATIENT
  Age: 53 Year
  Sex: Female
  Weight: 68.1 kg

DRUGS (8)
  1. NORTRIPTYLINE [Suspect]
  2. NEURONTIN [Suspect]
     Indication: NEURALGIA
     Dosage: 400 MILLIGRAM DAILY;
  3. ELAVIL [Suspect]
  4. SEROQUEL [Suspect]
  5. CYMBALTA [Suspect]
  6. REQUIP [Suspect]
  7. MIRAPEX [Suspect]
  8. TAMOXIFEN [Suspect]
     Indication: BREAST CANCER

REACTIONS (5)
  - Breast cancer [Unknown]
  - Feeling abnormal [Unknown]
  - Tic [Unknown]
  - Weight increased [Unknown]
  - Drug ineffective [Unknown]
